FAERS Safety Report 16491652 (Version 1)
Quarter: 2019Q2

REPORT INFORMATION
  Report Type: Spontaneous
  Country: US (occurrence: US)
  Receive Date: 20190520
  Receipt Date: 20190520
  Transmission Date: 20190711
  Serious: No
  Sender: FDA-Public Use
  Company Number: None

PATIENT
  Age: 69 Year
  Sex: Female

DRUGS (1)
  1. ORENCIA [Suspect]
     Active Substance: ABATACEPT
     Dosage: ?          OTHER  ?INTRAVENOUS (NOT OTHERWISE SPECIFIED)
     Route: 042
     Dates: start: 201903

REACTIONS (5)
  - Infection [None]
  - Muscle spasms [None]
  - Peripheral swelling [None]
  - Constipation [None]
  - Ocular hyperaemia [None]

NARRATIVE: CASE EVENT DATE: 20190520
